FAERS Safety Report 5948524-X (Version None)
Quarter: 2008Q4

REPORT INFORMATION
  Report Type: 
  Country: None (occurrence: None)
  Receive Date: 20081111
  Receipt Date: 20081031
  Transmission Date: 20090506
  Serious: Yes (Other)
  Sender: FDA-Public Use
  Company Number: B0545616A

PATIENT
  Sex: Female

DRUGS (4)
  1. KIVEXA [Suspect]
     Indication: HIV INFECTION
     Dates: start: 20070906, end: 20070927
  2. NORVIR [Suspect]
     Indication: HIV INFECTION
     Dates: start: 20070906, end: 20070927
  3. TELZIR [Suspect]
     Indication: HIV INFECTION
     Dates: start: 20070906, end: 20070927
  4. ZELITREX [Concomitant]
     Dates: start: 20070925

REACTIONS (1)
  - HEPATOTOXICITY [None]
